FAERS Safety Report 20405623 (Version 3)
Quarter: 2022Q1

REPORT INFORMATION
  Report Type: Report from Study
  Country: CH (occurrence: CH)
  Receive Date: 20220131
  Receipt Date: 20220225
  Transmission Date: 20220423
  Serious: Yes (Hospitalization)
  Sender: FDA-Public Use
  Company Number: CH-ABBVIE-22K-151-4256003-00

PATIENT
  Sex: Male

DRUGS (5)
  1. CARBIDOPA\LEVODOPA [Suspect]
     Active Substance: CARBIDOPA\LEVODOPA
     Indication: Parkinson^s disease
     Dosage: 1 CASSETTE A DAY
     Route: 050
     Dates: start: 20200210
  2. CARBIDOPA\LEVODOPA [Suspect]
     Active Substance: CARBIDOPA\LEVODOPA
     Dosage: MD: 5.5 ML, CRD: 4.1 ML/H, CRN: 3.2 ML/H, ED: 2.2 ML
     Route: 050
     Dates: start: 20210427, end: 20210428
  3. CARBIDOPA\LEVODOPA [Suspect]
     Active Substance: CARBIDOPA\LEVODOPA
     Dosage: MD: 6.0 ML, CRD: 4.1 ML/H, CRN: 3.2 ML/H, ED: 2.2 ML
     Route: 050
     Dates: start: 20210428, end: 20210511
  4. CARBIDOPA\LEVODOPA [Suspect]
     Active Substance: CARBIDOPA\LEVODOPA
     Dosage: MD: 5.0 ML, CRD: 4.4 ML/H, CRN: 3.4 ML/H, ED: 2.2 ML
     Route: 050
     Dates: start: 20210511
  5. CARBIDOPA\LEVODOPA [Suspect]
     Active Substance: CARBIDOPA\LEVODOPA
     Dosage: MD: 5.5 ML, CRD: 4.4 ML/H, CRN: 4.3 ML/H, ED: UNKNOWN?24H THERAPY
     Route: 050
     Dates: start: 20220224

REACTIONS (6)
  - Spinal stenosis [Recovering/Resolving]
  - Ischaemic stroke [Recovering/Resolving]
  - General physical health deterioration [Recovering/Resolving]
  - Tremor [Not Recovered/Not Resolved]
  - Fall [Unknown]
  - Pain [Recovering/Resolving]
